FAERS Safety Report 10096113 (Version 2)
Quarter: 2014Q2

REPORT INFORMATION
  Report Type: Spontaneous
  Country: DE (occurrence: DE)
  Receive Date: 20140422
  Receipt Date: 20140422
  Transmission Date: 20141212
  Serious: Yes (Other)
  Sender: FDA-Public Use
  Company Number: DE-UCBSA-097609

PATIENT
  Age: 46 Year
  Sex: Female

DRUGS (3)
  1. NEUPRO [Suspect]
     Indication: RESTLESS LEGS SYNDROME
     Dosage: UNKNOWN DOSE
     Route: 062
     Dates: start: 201308
  2. NEUPRO [Suspect]
     Indication: RESTLESS LEGS SYNDROME
     Dosage: HALF OF THE NEUPRO 1MG/24H PATCH
     Route: 062
  3. NEUPRO [Suspect]
     Indication: RESTLESS LEGS SYNDROME
     Route: 062

REACTIONS (6)
  - Restless legs syndrome [Unknown]
  - Pruritus generalised [Unknown]
  - Generalised erythema [Unknown]
  - Depression [Unknown]
  - Wrong technique in drug usage process [Unknown]
  - Drug ineffective [Unknown]
